FAERS Safety Report 9262973 (Version 2)
Quarter: 2013Q2

REPORT INFORMATION
  Report Type: Spontaneous
  Country: VE (occurrence: VE)
  Receive Date: 20130430
  Receipt Date: 20130528
  Transmission Date: 20140414
  Serious: Yes (Death)
  Sender: FDA-Public Use
  Company Number: VE-PFIZER INC-2013132512

PATIENT
  Age: 91 Year
  Sex: Male

DRUGS (4)
  1. LIPITOR [Suspect]
     Indication: CEREBROVASCULAR ACCIDENT
     Dosage: 20 MG, DAILY
     Route: 048
     Dates: start: 20130123
  2. ENALAPRIL [Concomitant]
     Route: 048
  3. TRANGOREX [Concomitant]
     Route: 048
  4. BENICAR [Concomitant]
     Route: 048

REACTIONS (1)
  - Respiratory arrest [Fatal]
